FAERS Safety Report 5834343-1 (Version None)
Quarter: 2008Q3

REPORT INFORMATION
  Report Type: 
  Country: None (occurrence: None)
  Receive Date: 20080805
  Receipt Date: 20080723
  Transmission Date: 20090109
  Serious: Yes (Hospitalization)
  Sender: FDA-Public Use
  Company Number: PHHO1999DE03611

PATIENT
  Sex: Female
  Weight: 68 kg

DRUGS (8)
  1. RAD 666 RAD+ [Suspect]
     Dosage: 1 MG, BID
     Route: 048
     Dates: start: 19990604, end: 19990610
  2. OMEPRAZOLE [Concomitant]
  3. ACETYLCYSTEINE [Concomitant]
  4. EBRANTIL (URAPIDIL) [Suspect]
  5. HEPARIN [Suspect]
  6. SANDIMMUNE [Suspect]
  7. PREDNISONE [Suspect]
  8. NITROGLYCERIN [Suspect]

REACTIONS (2)
  - NERVOUS SYSTEM DISORDER [None]
  - THROMBOCYTOPENIA [None]
